FAERS Safety Report 18150714 (Version 1)
Quarter: 2020Q3

REPORT INFORMATION
  Report Type: Spontaneous
  Country: US (occurrence: US)
  Receive Date: 20200814
  Receipt Date: 20200814
  Transmission Date: 20201103
  Serious: Yes (Death)
  Sender: FDA-Public Use
  Company Number: None

PATIENT
  Age: 85 Year
  Sex: Male
  Weight: 73.7 kg

DRUGS (1)
  1. REMDESIVIR. [Suspect]
     Active Substance: REMDESIVIR
     Indication: COVID-19 TREATMENT
     Route: 040
     Dates: start: 20200809, end: 20200810

REACTIONS (6)
  - Blood pressure decreased [None]
  - Bradycardia [None]
  - Hypoxia [None]
  - Disease progression [None]
  - Cardiac arrest [None]
  - Atrial fibrillation [None]

NARRATIVE: CASE EVENT DATE: 20200811
